FAERS Safety Report 21755473 (Version 1)
Quarter: 2022Q4

REPORT INFORMATION
  Report Type: Spontaneous
  Country: US (occurrence: US)
  Receive Date: 20221220
  Receipt Date: 20221220
  Transmission Date: 20230113
  Serious: Yes (Other)
  Sender: FDA-Public Use
  Company Number: US-TASMAN PHARMA, INC.-2022TSM01079

PATIENT
  Sex: Female

DRUGS (15)
  1. CLOZAPINE [Suspect]
     Active Substance: CLOZAPINE
     Indication: Suicidal behaviour
     Dosage: 200 MG, 1X/DAY AT BEDTIME
  2. CLOZAPINE [Suspect]
     Active Substance: CLOZAPINE
     Indication: Psychotic symptom
     Dosage: 600 MG, 1X/DAY
  3. CLOZAPINE [Suspect]
     Active Substance: CLOZAPINE
     Dosage: ^TITRATED DOWN^
  4. VENLAFAXINE [Concomitant]
     Active Substance: VENLAFAXINE HYDROCHLORIDE
     Indication: Psychotic disorder
     Dosage: EXTENDED RELEASE; 225 MG, 1X/DAY
  5. BUSPIRONE [Concomitant]
     Active Substance: BUSPIRONE HYDROCHLORIDE
     Indication: Psychotic disorder
     Dosage: 20 MG, 2X/DAY
  6. PRAZOSIN [Concomitant]
     Active Substance: PRAZOSIN
     Indication: Psychotic disorder
     Dosage: 3 MG, 1X/DAY AT BEDTIME
  7. VITAMIN D3 [Concomitant]
     Active Substance: CHOLECALCIFEROL
     Indication: Psychotic disorder
     Dosage: 2000 IU, 1X/DAY
  8. VITAMIN B12 [Concomitant]
     Active Substance: CYANOCOBALAMIN
     Indication: Psychotic disorder
     Dosage: 500 ?G, 1X/DAY
  9. OXCARBAZEPINE [Concomitant]
     Active Substance: OXCARBAZEPINE
     Indication: Seizure prophylaxis
     Dosage: 600 MG, 2X/DAY
  10. LEVETIRACETAM [Concomitant]
     Active Substance: LEVETIRACETAM
     Indication: Seizure prophylaxis
     Dosage: 750 MG, 2X/DAY
  11. METOPROLOL [Concomitant]
     Active Substance: METOPROLOL
     Dosage: 12.5 MG, 2X/DAY
  12. METFORMIN [Concomitant]
     Active Substance: METFORMIN HYDROCHLORIDE
     Dosage: EXTENDED RELEASE, 500 MG 1X/DAY AT NIGHT
  13. ROSUVASTATIN [Concomitant]
     Active Substance: ROSUVASTATIN
     Dosage: 40 MG, 1X/DAY AT NIGHT
  14. ASPIRIN [Concomitant]
     Active Substance: ASPIRIN
     Dosage: 81 MG, 1X/DAY
  15. COVID-19 VACCINE (JOHNSON AND JOHNSON) [Concomitant]
     Dosage: UNK

REACTIONS (4)
  - Abscess [Unknown]
  - Pneumonia [Unknown]
  - Immunosuppression [Unknown]
  - Vaccination failure [Unknown]
